FAERS Safety Report 9154889 (Version 1)
Quarter: 2013Q1

REPORT INFORMATION
  Report Type: Spontaneous
  Country: SE (occurrence: SE)
  Receive Date: 20130311
  Receipt Date: 20130311
  Transmission Date: 20140127
  Serious: Yes (Disabling)
  Sender: FDA-Public Use
  Company Number: PHHY2013SE022916

PATIENT
  Sex: 0

DRUGS (1)
  1. VOLTAREN [Suspect]
     Indication: PAIN
     Dosage: UNK UKN, FOR TEN YEARS

REACTIONS (3)
  - Angiopathy [Unknown]
  - Local swelling [Unknown]
  - Fluid retention [Unknown]
